FAERS Safety Report 6690810-2 (Version None)
Quarter: 2010Q2

REPORT INFORMATION
  Report Type: 
  Country: None (occurrence: None)
  Receive Date: 20100421
  Receipt Date: 20100413
  Transmission Date: 20101027
  Serious: Yes (Hospitalization)
  Sender: FDA-Public Use
  Company Number: US-SANOFI-AVENTIS-2010SA019920

PATIENT
  Age: 44 Year
  Sex: Male

DRUGS (13)
  1. OXALIPLATIN [Suspect]
     Route: 042
     Dates: start: 20100202, end: 20100202
  2. OXALIPLATIN [Suspect]
     Route: 042
     Dates: start: 20100302, end: 20100302
  3. OXALIPLATIN [Suspect]
     Route: 042
     Dates: start: 20100316, end: 20100316
  4. OXALIPLATIN [Suspect]
     Route: 042
     Dates: start: 20100216, end: 20100216
  5. BEVACIZUMAB [Suspect]
     Route: 042
     Dates: start: 20100202, end: 20100202
  6. BEVACIZUMAB [Suspect]
     Route: 042
     Dates: start: 20100216, end: 20100216
  7. BEVACIZUMAB [Suspect]
     Route: 042
     Dates: start: 20100302, end: 20100302
  8. BEVACIZUMAB [Suspect]
     Route: 042
     Dates: start: 20100316, end: 20100316
  9. AMLODIPINE [Concomitant]
  10. AMLODIPINE [Concomitant]
     Dates: start: 20100324
  11. MORPHINE [Concomitant]
  12. FAMOTIDINE [Concomitant]
  13. MEGESTROL ACETATE [Concomitant]

REACTIONS (3)
  - ENCEPHALOPATHY [None]
  - GRAND MAL CONVULSION [None]
  - HYPERTENSION [None]
